FAERS Safety Report 7569026-3 (Version None)
Quarter: 2011Q2

REPORT INFORMATION
  Report Type: 
  Country: None (occurrence: None)
  Receive Date: 20110623
  Receipt Date: 20110621
  Transmission Date: 20111010
  Serious: Yes (Other)
  Sender: FDA-Public Use
  Company Number: JP-PFIZER INC-2011048519

PATIENT
  Age: 63 Year
  Sex: Female

DRUGS (5)
  1. ETODOLAC [Concomitant]
     Dosage: 400 MG, 1X/DAY
  2. NORVASC [Suspect]
     Dosage: 5 MG, 1X/DAY
     Route: 048
     Dates: end: 20101201
  3. REBAMIPIDE [Concomitant]
     Dosage: UNK
  4. LIPITOR [Suspect]
     Dosage: 5 MG, 1X/DAY
     Route: 048
     Dates: start: 20101001, end: 20101201
  5. FAMOTIDINE [Concomitant]
     Dosage: UNK
     Route: 048

REACTIONS (6)
  - MUSCLE DISORDER [None]
  - WEIGHT DECREASED [None]
  - RHABDOMYOLYSIS [None]
  - MYALGIA [None]
  - RHEUMATOID ARTHRITIS [None]
  - MUSCULAR WEAKNESS [None]
